FAERS Safety Report 14773903 (Version 1)
Quarter: 2018Q2

REPORT INFORMATION
  Report Type: Spontaneous
  Country: ES (occurrence: ES)
  Receive Date: 20180418
  Receipt Date: 20180418
  Transmission Date: 20180711
  Serious: Yes (Other)
  Sender: FDA-Public Use
  Company Number: ES-009507513-1804ESP007163

PATIENT
  Age: 65 Year
  Sex: Male

DRUGS (1)
  1. EZETIMIBE (+) ATORVASTATIN [Suspect]
     Active Substance: ATORVASTATIN\EZETIMIBE
     Indication: DYSLIPIDAEMIA
     Dosage: 40 MG, Q24H
     Route: 048
     Dates: start: 20180207, end: 20180319

REACTIONS (1)
  - Hepatitis cholestatic [Recovering/Resolving]

NARRATIVE: CASE EVENT DATE: 20180319
